FAERS Safety Report 8493555 (Version 9)
Quarter: 2012Q4

REPORT INFORMATION
  Report Type: Report from Study
  Country: FR (occurrence: FR)
  Receive Date: 20120404
  Receipt Date: 20121217
  Transmission Date: 20130627
  Serious: Yes (Hospitalization)
  Sender: FDA-Public Use
  Company Number: FR-ROCHE-1050806

PATIENT
  Age: 54 None
  Sex: Female
  Weight: 46 kg

DRUGS (33)
  1. TRASTUZUMAB [Suspect]
     Indication: BREAST CANCER
     Dosage: last dose prior to edema on 14 dec 2011, LAST DOSE 312 MG
     Route: 042
     Dates: start: 20111123
  2. DOCETAXEL [Suspect]
     Indication: BREAST CANCER
     Dosage: last dose prior to edema on 14 dec 2011, LAST DOSE 153 MG
     Route: 042
     Dates: start: 20111123
  3. ZOMETA [Concomitant]
     Indication: BONE PAIN
     Route: 065
     Dates: start: 20111011
  4. EMEND [Concomitant]
     Indication: NAUSEA
     Route: 065
     Dates: start: 20111026, end: 20121024
  5. OROPERIDYS [Concomitant]
     Indication: NAUSEA
     Route: 065
     Dates: start: 20111026
  6. FORLAX (FRANCE) [Concomitant]
     Indication: CONSTIPATION
     Route: 065
     Dates: start: 20111026, end: 201204
  7. SOPHIDONE [Concomitant]
     Indication: MUSCULOSKELETAL CHEST PAIN
     Route: 065
     Dates: start: 20111123, end: 201208
  8. LYRICA [Concomitant]
     Indication: MUSCULOSKELETAL CHEST PAIN
     Route: 065
     Dates: start: 20111123, end: 20121024
  9. VERSATIS [Concomitant]
     Indication: MUSCULOSKELETAL CHEST PAIN
     Route: 065
     Dates: start: 20111123, end: 20120104
  10. PARACETAMOL [Concomitant]
     Indication: MUSCULOSKELETAL CHEST PAIN
     Route: 065
     Dates: start: 20111123, end: 20121024
  11. BI-PROFENID [Concomitant]
     Indication: MUSCULOSKELETAL CHEST PAIN
     Route: 065
     Dates: start: 20111123, end: 20111213
  12. INIPOMP [Concomitant]
     Indication: MUSCULOSKELETAL CHEST PAIN
     Route: 065
     Dates: start: 20111123, end: 20111213
  13. PRIMPERAN (FRANCE) [Concomitant]
     Indication: NAUSEA
     Route: 065
     Dates: start: 20111026
  14. ACUPAN [Concomitant]
     Indication: PAIN
     Route: 065
     Dates: start: 20111214, end: 20120104
  15. SOLUPRED (FRANCE) [Concomitant]
     Indication: PAIN
     Route: 065
     Dates: start: 20111214, end: 20120104
  16. ZOPHREN [Concomitant]
     Indication: PROPHYLAXIS
     Route: 065
     Dates: start: 20111214, end: 20121024
  17. METHYLPREDNISOLONE [Concomitant]
     Indication: PROPHYLAXIS
     Route: 065
     Dates: start: 20111123, end: 20121024
  18. PIVALONE [Concomitant]
     Indication: RHONCHI
     Route: 065
     Dates: start: 20111222, end: 20111230
  19. BIOCALYPTOL (FRANCE) [Concomitant]
     Indication: RHONCHI
     Route: 065
     Dates: start: 20111222, end: 20111230
  20. AUGMENTIN [Concomitant]
     Indication: INFLUENZA LIKE ILLNESS
     Route: 065
     Dates: start: 20120106, end: 20120111
  21. AUGMENTIN [Concomitant]
     Indication: ANGINA PECTORIS
     Route: 065
     Dates: start: 201209, end: 20121024
  22. ULTRA LEVURA [Concomitant]
     Indication: INFLUENZA LIKE ILLNESS
     Route: 065
     Dates: start: 20120106, end: 20120111
  23. POLERY ADULTE [Concomitant]
     Indication: INFLUENZA LIKE ILLNESS
     Route: 065
     Dates: start: 20120106, end: 20120111
  24. BECLOMETHASONE [Concomitant]
     Indication: INFLUENZA LIKE ILLNESS
     Route: 065
     Dates: start: 20120106, end: 20120111
  25. ESBERIVEN [Concomitant]
     Indication: HAEMORRHOIDS
     Dosage: drug stop date: //2012
     Route: 065
     Dates: start: 20120215, end: 2012
  26. DUPHALAC [Concomitant]
     Indication: CONSTIPATION
     Route: 065
     Dates: start: 20120215, end: 201204
  27. KABIVEN [Concomitant]
     Indication: DECREASED APPETITE
     Dosage: drug stop date: /Mar/2012
     Route: 065
     Dates: start: 20120313
  28. TRANSIPEG (FRANCE) [Concomitant]
     Indication: CONSTIPATION
     Dosage: drug stop date: /Apr/2012
     Route: 065
     Dates: start: 20120402, end: 201204
  29. XANAX [Concomitant]
     Indication: ANXIETY
     Route: 065
     Dates: start: 201203, end: 20120402
  30. TOPALGIC [Concomitant]
     Indication: PAIN
     Route: 065
     Dates: start: 20120325, end: 20120326
  31. EFFERALGAN [Concomitant]
     Indication: BONE PAIN
     Dosage: drug stop date: 2012
     Route: 065
     Dates: start: 20120509, end: 2012
  32. SINTROM [Concomitant]
     Indication: THROMBOSIS
     Route: 065
     Dates: start: 201208
  33. ACTISKENAN [Concomitant]
     Indication: BONE PAIN
     Route: 065
     Dates: start: 2012

REACTIONS (2)
  - General physical health deterioration [Recovered/Resolved]
  - Oedema [Recovered/Resolved]
